APPROVED DRUG PRODUCT: ATORVASTATIN CALCIUM
Active Ingredient: ATORVASTATIN CALCIUM
Strength: EQ 80MG BASE
Dosage Form/Route: TABLET;ORAL
Application: A204846 | Product #004
Applicant: INVAGEN PHARMACEUTICALS INC
Approved: Jan 9, 2017 | RLD: No | RS: No | Type: DISCN